FAERS Safety Report 18322526 (Version 2)
Quarter: 2020Q4

REPORT INFORMATION
  Report Type: Report from Study
  Country: US (occurrence: US)
  Receive Date: 20200929
  Receipt Date: 20201009
  Transmission Date: 20210113
  Serious: Yes (Hospitalization, Other)
  Sender: FDA-Public Use
  Company Number: US-TAKEDA-2020TUS037467

PATIENT
  Age: 61 Year
  Sex: Female
  Weight: 81 kg

DRUGS (8)
  1. METHYLPREDNISOLONE                 /00049602/ [Suspect]
     Active Substance: METHYLPREDNISOLONE
     Indication: VULVOVAGINAL PRURITUS
  2. VEDOLIZUMAB [Suspect]
     Active Substance: VEDOLIZUMAB
     Indication: CROHN^S DISEASE
     Dosage: 300 MILLIGRAM
     Route: 042
  3. VEDOLIZUMAB [Suspect]
     Active Substance: VEDOLIZUMAB
     Dosage: 300 MILLIGRAM
     Route: 042
  4. FLAGYL [Concomitant]
     Active Substance: METRONIDAZOLE\METRONIDAZOLE HYDROCHLORIDE
     Indication: FISTULA
     Dosage: UNK
  5. BENADRYL [Suspect]
     Active Substance: DIPHENHYDRAMINE HYDROCHLORIDE
     Dosage: UNK
     Route: 048
  6. CIPRO [Concomitant]
     Active Substance: CIPROFLOXACIN HYDROCHLORIDE
     Indication: FISTULA
     Dosage: UNK
  7. METHYLPREDNISOLONE                 /00049602/ [Suspect]
     Active Substance: METHYLPREDNISOLONE
     Indication: ANAL PRURITUS
     Dosage: UNK
     Route: 065
  8. BENADRYL [Suspect]
     Active Substance: DIPHENHYDRAMINE HYDROCHLORIDE
     Indication: PREMEDICATION
     Dosage: UNK
     Route: 042

REACTIONS (25)
  - Back pain [Recovered/Resolved]
  - Gastrooesophageal reflux disease [Unknown]
  - Fluid retention [Unknown]
  - Headache [Unknown]
  - Therapeutic reaction time decreased [Unknown]
  - Anal fistula [Recovered/Resolved]
  - Infected fistula [Unknown]
  - Emotional distress [Unknown]
  - Haemorrhoids [Unknown]
  - Pruritus [Not Recovered/Not Resolved]
  - Nausea [Unknown]
  - Vulvovaginal pruritus [Not Recovered/Not Resolved]
  - Photopsia [Unknown]
  - Loss of consciousness [Unknown]
  - Off label use [Unknown]
  - Anal abscess [Unknown]
  - Anal pruritus [Not Recovered/Not Resolved]
  - Chest pain [Recovered/Resolved]
  - Diarrhoea [Unknown]
  - Constipation [Unknown]
  - Anal incontinence [Unknown]
  - Rectal fissure [Unknown]
  - Vulvovaginal erythema [Not Recovered/Not Resolved]
  - Vision blurred [Unknown]
  - Vulvovaginal dryness [Not Recovered/Not Resolved]

NARRATIVE: CASE EVENT DATE: 202008
